FAERS Safety Report 16688127 (Version 2)
Quarter: 2019Q3

REPORT INFORMATION
  Report Type: Spontaneous
  Country: DE (occurrence: DE)
  Receive Date: 20190809
  Receipt Date: 20190815
  Transmission Date: 20191004
  Serious: Yes (Other)
  Sender: FDA-Public Use
  Company Number: DE-PFIZER INC-2019333986

PATIENT
  Age: 47 Year
  Sex: Female

DRUGS (4)
  1. FILGRASTIM [Suspect]
     Active Substance: FILGRASTIM
     Indication: AUTOIMMUNE NEUTROPENIA
  2. FILGRASTIM [Suspect]
     Active Substance: FILGRASTIM
     Indication: STAPHYLOCOCCAL INFECTION
     Dosage: 1.6 MICROGRAM/KILOGRAM, QD
     Route: 058
  3. FILGRASTIM [Suspect]
     Active Substance: FILGRASTIM
     Indication: SYSTEMIC LUPUS ERYTHEMATOSUS
  4. FILGRASTIM [Suspect]
     Active Substance: FILGRASTIM
     Indication: PYREXIA

REACTIONS (4)
  - Product use in unapproved indication [Unknown]
  - Psychotic disorder [Recovered/Resolved]
  - Off label use [Unknown]
  - Nystagmus [Recovered/Resolved]
